FAERS Safety Report 4951991-1 (Version None)
Quarter: 2006Q1

REPORT INFORMATION
  Report Type: 
  Country: None (occurrence: None)
  Receive Date: 20060320
  Receipt Date: 20060307
  Transmission Date: 20060701
  Serious: Yes (Hospitalization)
  Sender: FDA-Public Use
  Company Number: 2006P1000148

PATIENT
  Age: 60 Year
  Sex: Male
  Weight: 100 kg

DRUGS (7)
  1. RETEPLASE                     (RETEPLASE) [Suspect]
     Indication: ACUTE MYOCARDIAL INFARCTION
     Dosage: IV
     Route: 042
     Dates: start: 20051210, end: 20051210
  2. ABCIXIMAB                       (ABCIXIMAB) [Suspect]
     Indication: ACUTE MYOCARDIAL INFARCTION
     Dosage: IV
     Route: 042
     Dates: start: 20051210, end: 20051210
  3. CLOPIDOGREL [Concomitant]
  4. FLUVASTATIN [Concomitant]
  5. ACETYLSALICYLIC ACID SRT [Concomitant]
  6. GLIPIZIDE [Concomitant]
  7. TRIMETAZIDINE [Concomitant]

REACTIONS (1)
  - CORONARY ARTERY STENOSIS [None]
